FAERS Safety Report 7788015-7 (Version None)
Quarter: 2011Q3

REPORT INFORMATION
  Report Type: 
  Country: None (occurrence: None)
  Receive Date: 20110927
  Receipt Date: 20110913
  Transmission Date: 20111222
  Serious: Yes (Hospitalization)
  Sender: FDA-Public Use
  Company Number: JPI-P-017033

PATIENT
  Age: 40 Year
  Sex: Female
  Weight: 58.9676 kg

DRUGS (5)
  1. XYREM [Suspect]
     Indication: SLEEP DISORDER
     Dosage: ORAL ; 9 GM (4.5 GM,2 IN 1 D),ORAL
     Route: 048
     Dates: start: 20110301, end: 20110101
  2. XYREM [Suspect]
     Indication: SLEEP DISORDER
     Dosage: ORAL ; 9 GM (4.5 GM,2 IN 1 D),ORAL
     Route: 048
     Dates: start: 20110101
  3. CONJUGATED ESTROGENS [Concomitant]
  4. GABAPENTIN [Concomitant]
  5. SERTRALINE HYDROCHLORIDE [Concomitant]

REACTIONS (2)
  - DEHYDRATION [None]
  - GASTRITIS [None]
